FAERS Safety Report 4757640-X (Version None)
Quarter: 2005Q3

REPORT INFORMATION
  Report Type: 
  Country: None (occurrence: None)
  Receive Date: 20050831
  Receipt Date: 20050705
  Transmission Date: 20060218
  Serious: Yes (Other)
  Sender: FDA-Public Use
  Company Number: US-GLAXOSMITHKLINE-A0565071A

PATIENT
  Age: 15 Year
  Sex: Male

DRUGS (4)
  1. PAROXETINE [Suspect]
     Indication: ANXIETY
     Route: 048
     Dates: start: 20050601, end: 20050101
  2. PAXIL CR [Concomitant]
     Indication: ANXIETY
     Route: 048
  3. BUSPAR [Concomitant]
  4. ATIVAN [Concomitant]

REACTIONS (5)
  - AGITATION [None]
  - DEPRESSION [None]
  - PERSONALITY CHANGE [None]
  - SUICIDAL IDEATION [None]
  - SUICIDE ATTEMPT [None]
